FAERS Safety Report 4961741-0 (Version None)
Quarter: 2006Q1

REPORT INFORMATION
  Report Type: 
  Country: None (occurrence: None)
  Receive Date: 20060329
  Receipt Date: 20060316
  Transmission Date: 20060701
  Serious: Yes (Hospitalization, Other)
  Sender: FDA-Public Use
  Company Number: HQWYE368017MAR06

PATIENT
  Age: 16 Year
  Sex: Male

DRUGS (3)
  1. PANTOPRAZOLE SODIUM [Suspect]
     Indication: PROPHYLAXIS
     Dosage: UNSPECIFIED DOSE ONCE DAILY UNKNOWN
     Route: 065
     Dates: start: 20051009
  2. VOLTAREN [Suspect]
     Indication: PAIN
     Dosage: 150 MG 1X PER 1 DAY ORAL
     Route: 048
     Dates: start: 20051009, end: 20051001
  3. HEPARIN [Concomitant]

REACTIONS (9)
  - ANGINA PECTORIS [None]
  - DIZZINESS [None]
  - DYSKINESIA [None]
  - DYSPEPSIA [None]
  - HYPERHIDROSIS [None]
  - MUSCLE CONTRACTIONS INVOLUNTARY [None]
  - NAUSEA [None]
  - SOMNOLENCE [None]
  - VISUAL DISTURBANCE [None]
